FAERS Safety Report 17229029 (Version 1)
Quarter: 2019Q4

REPORT INFORMATION
  Report Type: Spontaneous
  Country: US (occurrence: US)
  Receive Date: 20191210
  Receipt Date: 20191210
  Transmission Date: 20200122
  Serious: Yes (Hospitalization)
  Sender: FDA-Public Use
  Company Number: None

PATIENT
  Age: 42 Year
  Sex: Male

DRUGS (6)
  1. HYDROXYZ HCI [Concomitant]
  2. METOCLOPRAMIDE. [Concomitant]
     Active Substance: METOCLOPRAMIDE
  3. MECLIZINE [Concomitant]
     Active Substance: MECLIZINE HYDROCHLORIDE
  4. DIAZEPAM. [Concomitant]
     Active Substance: DIAZEPAM
  5. BUSPIRONE [Concomitant]
     Active Substance: BUSPIRONE HYDROCHLORIDE
  6. SIMPONI [Suspect]
     Active Substance: GOLIMUMAB
     Indication: RHEUMATOID ARTHRITIS
     Route: 058
     Dates: start: 20171129

REACTIONS (1)
  - Vertigo [None]

NARRATIVE: CASE EVENT DATE: 20191204
